FAERS Safety Report 13355172 (Version 1)
Quarter: 2017Q1

REPORT INFORMATION
  Report Type: Spontaneous
  Country: US (occurrence: US)
  Receive Date: 20170321
  Receipt Date: 20170321
  Transmission Date: 20170429
  Serious: No
  Sender: FDA-Public Use
  Company Number: US-BAUSCH-BL-2016-020255

PATIENT
  Age: 70 Year
  Sex: Female

DRUGS (2)
  1. TRETINOIN CREAM 0.05% [Suspect]
     Active Substance: TRETINOIN
     Indication: ACNE
     Dosage: ONCE DAILY AS NEEDED
     Route: 061
     Dates: start: 2014
  2. TRETINOIN CREAM 0.05% [Suspect]
     Active Substance: TRETINOIN
     Dosage: ONCE DAILY AS NEEDED
     Route: 061
     Dates: start: 20160818

REACTIONS (2)
  - Skin exfoliation [Unknown]
  - Erythema [Unknown]

NARRATIVE: CASE EVENT DATE: 201608
